FAERS Safety Report 7929845-8 (Version None)
Quarter: 2011Q4

REPORT INFORMATION
  Report Type: 
  Country: None (occurrence: None)
  Receive Date: 20111121
  Receipt Date: 20111115
  Transmission Date: 20120403
  Serious: No
  Sender: FDA-Public Use
  Company Number: US-PFIZER INC-2011280009

PATIENT
  Sex: Female
  Weight: 56.236 kg

DRUGS (5)
  1. TRAZODONE [Concomitant]
     Indication: SLEEP DISORDER
     Dosage: UNK
  2. TOPAMAX [Concomitant]
     Indication: DEPRESSION
     Dosage: UNK
  3. XANAX [Concomitant]
     Indication: DEPRESSION
     Dosage: UNK
  4. REQUIP [Concomitant]
     Indication: LIMB DISCOMFORT
     Dosage: UNK
  5. NICOTROL [Suspect]
     Indication: SMOKING CESSATION THERAPY
     Dosage: UNK
     Dates: start: 20111108

REACTIONS (1)
  - OROPHARYNGEAL CANDIDIASIS [None]
